FAERS Safety Report 9803345 (Version 1)
Quarter: 2014Q1

REPORT INFORMATION
  Report Type: Spontaneous
  Country: US (occurrence: US)
  Receive Date: 20140108
  Receipt Date: 20140108
  Transmission Date: 20141002
  Serious: No
  Sender: FDA-Public Use
  Company Number: US-009507513-1401USA002310

PATIENT
  Sex: Female

DRUGS (2)
  1. MEVACOR TABLET [Suspect]
     Dosage: UNK
     Route: 048
  2. LOVASTATIN [Suspect]
     Dosage: UNK
     Route: 048

REACTIONS (3)
  - Pain [Unknown]
  - Muscle spasms [Unknown]
  - Dizziness [Unknown]
